FAERS Safety Report 19839567 (Version 1)
Quarter: 2021Q3

REPORT INFORMATION
  Report Type: Spontaneous
  Country: US (occurrence: US)
  Receive Date: 20210915
  Receipt Date: 20210915
  Transmission Date: 20211014
  Serious: Yes (Hospitalization)
  Sender: FDA-Public Use
  Company Number: None

PATIENT
  Age: 77 Year
  Sex: Female
  Weight: 40.7 kg

DRUGS (2)
  1. CISPLATIN. [Suspect]
     Active Substance: CISPLATIN
     Dates: end: 20210802
  2. ALIMTA [Suspect]
     Active Substance: PEMETREXED DISODIUM
     Dates: end: 20210802

REACTIONS (6)
  - Hip fracture [None]
  - Fall [None]
  - Hallucination, auditory [None]
  - Hallucination, visual [None]
  - Anaesthetic complication [None]
  - Adverse drug reaction [None]

NARRATIVE: CASE EVENT DATE: 20210813
